FAERS Safety Report 4426718-2 (Version None)
Quarter: 2004Q3

REPORT INFORMATION
  Report Type: 
  Country: None (occurrence: None)
  Receive Date: 20040816
  Receipt Date: 20040802
  Transmission Date: 20050211
  Serious: Yes (Hospitalization)
  Sender: FDA-Public Use
  Company Number: JP-JNJFOC-20040800657

PATIENT
  Sex: Male

DRUGS (4)
  1. BLINDED; TOPIRAMATE [Suspect]
     Route: 049
  2. BLINDED; TOPIRAMATE [Suspect]
     Route: 049
  3. BLINDED; TOPIRAMATE [Suspect]
     Route: 049
  4. BLINDED; TOPIRAMATE [Suspect]
     Indication: EPILEPSY
     Route: 049

REACTIONS (9)
  - CONTUSION [None]
  - DEHYDRATION [None]
  - EXCORIATION [None]
  - FALL [None]
  - FOOT FRACTURE [None]
  - HEAT STROKE [None]
  - INFECTION [None]
  - PYREXIA [None]
  - WOUND [None]
